FAERS Safety Report 20962760 (Version 1)
Quarter: 2022Q2

REPORT INFORMATION
  Report Type: Spontaneous
  Country: AT (occurrence: AT)
  Receive Date: 20220615
  Receipt Date: 20220615
  Transmission Date: 20220721
  Serious: Yes (Death, Hospitalization)
  Sender: FDA-Public Use
  Company Number: AT-DSJP-DSE-2022-120883

PATIENT
  Sex: Male
  Weight: 93 kg

DRUGS (3)
  1. ENHERTU [Suspect]
     Active Substance: FAM-TRASTUZUMAB DERUXTECAN-NXKI
     Indication: HER2 positive gastric cancer
     Dosage: 6.4 MG/KG, CYCLIC (CYCLE 1)
     Route: 042
  2. ENHERTU [Suspect]
     Active Substance: FAM-TRASTUZUMAB DERUXTECAN-NXKI
     Dosage: 6.4 MG/KG, CYCLIC (CYCLE 2)
     Route: 042
  3. ENHERTU [Suspect]
     Active Substance: FAM-TRASTUZUMAB DERUXTECAN-NXKI
     Dosage: 6.4 MG/KG, CYCLIC (CYCLE 3)
     Route: 042
     Dates: start: 20220524, end: 20220524

REACTIONS (3)
  - Gastric haemorrhage [Fatal]
  - Disease progression [Fatal]
  - Off label use [Unknown]
